FAERS Safety Report 12560182 (Version 1)
Quarter: 2016Q3

REPORT INFORMATION
  Report Type: Spontaneous
  Country: US (occurrence: US)
  Receive Date: 20160715
  Receipt Date: 20160715
  Transmission Date: 20161109
  Serious: No
  Sender: FDA-Public Use
  Company Number: US-JNJFOC-20160624334

PATIENT
  Age: 82 Year
  Sex: Female
  Weight: 66 kg

DRUGS (2)
  1. WOMENS ROGAINE UNSCENTED [Suspect]
     Active Substance: MINOXIDIL
     Route: 061
  2. WOMENS ROGAINE UNSCENTED [Suspect]
     Active Substance: MINOXIDIL
     Indication: ALOPECIA
     Dosage: HALF A CAP, EVERY NIGHT
     Route: 061
     Dates: end: 20160624

REACTIONS (3)
  - Off label use [Not Recovered/Not Resolved]
  - Pruritus [Not Recovered/Not Resolved]
  - Product use issue [Not Recovered/Not Resolved]
